FAERS Safety Report 11205916 (Version 1)
Quarter: 2015Q2

REPORT INFORMATION
  Report Type: Spontaneous
  Country: US (occurrence: None)
  Receive Date: 20150619
  Receipt Date: 20150619
  Transmission Date: 20150821
  Serious: Yes (Other)
  Sender: FDA-Public Use
  Company Number: None

PATIENT
  Age: 31 Year
  Sex: Female
  Weight: 54.43 kg

DRUGS (5)
  1. BUPROPRION HCL [Concomitant]
     Active Substance: BUPROPION HYDROCHLORIDE
  2. ZUBSOLV [Suspect]
     Active Substance: BUPRENORPHINE HYDROCHLORIDE\NALOXONE HYDROCHLORIDE
     Indication: DRUG DEPENDENCE
     Dosage: 1 PILL
     Route: 060
     Dates: start: 20140808, end: 20150301
  3. ALPRAZOLAM. [Concomitant]
     Active Substance: ALPRAZOLAM
  4. CAMRESE [Concomitant]
     Active Substance: ETHINYL ESTRADIOL\LEVONORGESTREL
  5. KETROLAC [Concomitant]

REACTIONS (4)
  - Hyperhidrosis [None]
  - Rash [None]
  - Blood pressure decreased [None]
  - Vomiting [None]

NARRATIVE: CASE EVENT DATE: 20140814
